FAERS Safety Report 5034540-1 (Version None)
Quarter: 2006Q2

REPORT INFORMATION
  Report Type: 
  Country: None (occurrence: None)
  Receive Date: 20060626
  Receipt Date: 20060530
  Transmission Date: 20061013
  Serious: Yes (Life-Threatening, Disabling, Other)
  Sender: FDA-Public Use
  Company Number: JP-NOVOPROD-253738

PATIENT
  Age: 21 Year
  Sex: Female

DRUGS (6)
  1. PENFILL 30R CHU [Suspect]
     Indication: DIABETES MELLITUS INSULIN-DEPENDENT
     Dosage: 5-15 IU
     Route: 058
     Dates: start: 20010808, end: 20011214
  2. PENFILL 50R CHU [Suspect]
     Indication: DIABETES MELLITUS INSULIN-DEPENDENT
     Dosage: 10 IU
     Route: 058
     Dates: start: 20010824
  3. NEUQUINON [Concomitant]
     Indication: MELAS SYNDROME
     Dosage: 150 MG
     Route: 048
     Dates: start: 19980101, end: 20011214
  4. FURSULTIAMINE [Concomitant]
     Indication: MELAS SYNDROME
     Dosage: 150 MG
     Route: 048
     Dates: end: 20011214
  5. CYTOREST [Concomitant]
     Indication: MELAS SYNDROME
     Dosage: 3 CAPS
     Route: 048
  6. ALEVIATIN                          /00017401/ [Concomitant]
     Indication: MELAS SYNDROME
     Dosage: 1-2 TABLETS
     Route: 048
     Dates: start: 19980101, end: 20011214

REACTIONS (6)
  - CONVULSION [None]
  - GLYCOSYLATED HAEMOGLOBIN INCREASED [None]
  - HEADACHE [None]
  - PERSONALITY DISORDER [None]
  - STATUS EPILEPTICUS [None]
  - VOMITING [None]
